FAERS Safety Report 7889990-2 (Version None)
Quarter: 2011Q4

REPORT INFORMATION
  Report Type: 
  Country: None (occurrence: None)
  Receive Date: 20111103
  Receipt Date: 20111025
  Transmission Date: 20120403
  Serious: Yes (Other)
  Sender: FDA-Public Use
  Company Number: PHHY2010US47131

PATIENT
  Sex: Female

DRUGS (6)
  1. FEMARA [Suspect]
     Dosage: 2.5 MG, QOD
  2. ZOMETA [Suspect]
     Indication: OSTEOPOROSIS
     Dates: start: 20091101
  3. VITAMIN D [Concomitant]
  4. CALCIUM [Concomitant]
  5. OMEGA [Concomitant]
  6. FEMARA [Suspect]
     Dosage: 2.5 MG, QD
     Dates: start: 20100331

REACTIONS (17)
  - PYREXIA [None]
  - FATIGUE [None]
  - VULVOVAGINAL DRYNESS [None]
  - RIB FRACTURE [None]
  - HYPERHIDROSIS [None]
  - CONSTIPATION [None]
  - WEIGHT INCREASED [None]
  - BONE PAIN [None]
  - DEPRESSED MOOD [None]
  - LIBIDO DECREASED [None]
  - WEIGHT DECREASED [None]
  - HOT FLUSH [None]
  - DIARRHOEA [None]
  - MOOD SWINGS [None]
  - DEPRESSION [None]
  - DEPRESSED LEVEL OF CONSCIOUSNESS [None]
  - VULVOVAGINAL PAIN [None]
